FAERS Safety Report 8174354-7 (Version None)
Quarter: 2012Q1

REPORT INFORMATION
  Report Type: 
  Country: None (occurrence: None)
  Receive Date: 20120229
  Receipt Date: 20120223
  Transmission Date: 20120608
  Serious: Yes (Life-Threatening, Other)
  Sender: FDA-Public Use
  Company Number: IT-BAYER-2011-117130

PATIENT
  Age: 71 Year
  Sex: Male

DRUGS (7)
  1. ADRENERGICS, INHALANTS [Concomitant]
     Route: 055
  2. TAMSULOSIN HCL [Concomitant]
     Route: 048
  3. TRAVATAN [Concomitant]
     Route: 047
  4. ULTRAVIST 150 [Suspect]
     Indication: COMPUTERISED TOMOGRAM
     Dosage: 120 ML, ONCE
     Route: 042
     Dates: start: 20111206, end: 20111206
  5. COSOPT [Concomitant]
     Route: 047
  6. BICALUTAMIDE [Concomitant]
     Dosage: DAILY DOSE 150 MG
     Route: 048
  7. TPN [Concomitant]
     Route: 048

REACTIONS (4)
  - CARDIAC ARREST [None]
  - ASTHENIA [None]
  - CONTRAST MEDIA REACTION [None]
  - CYANOSIS [None]
